FAERS Safety Report 9472572 (Version 1)
Quarter: 2013Q3

REPORT INFORMATION
  Report Type: Spontaneous
  Country: US (occurrence: None)
  Receive Date: 20130821
  Receipt Date: 20130821
  Transmission Date: 20140515
  Serious: No
  Sender: FDA-Public Use
  Company Number: None

PATIENT
  Age: 41 Year
  Sex: Male
  Weight: 83.8 kg

DRUGS (1)
  1. TRAZODONE [Suspect]
     Dosage: 1 TAB (150MG), QHS/BEDTIME, ORAL
     Route: 048
     Dates: start: 20130813, end: 20130814

REACTIONS (3)
  - Sexual activity increased [None]
  - Sexually inappropriate behaviour [None]
  - Excessive masturbation [None]
